FAERS Safety Report 14194365 (Version 1)
Quarter: 2017Q4

REPORT INFORMATION
  Report Type: Spontaneous
  Country: GR (occurrence: GR)
  Receive Date: 20171115
  Receipt Date: 20171115
  Transmission Date: 20180321
  Serious: Yes (Congenital Anomaly)
  Sender: FDA-Public Use
  Company Number: None

PATIENT
  Sex: Male
  Weight: 115 kg

DRUGS (2)
  1. COVERSYL [Concomitant]
     Active Substance: PERINDOPRIL
  2. PERINDOPRIL [Suspect]
     Active Substance: PERINDOPRIL
     Indication: BLOOD PRESSURE MEASUREMENT

REACTIONS (1)
  - Paternal exposure timing unspecified [None]
